FAERS Safety Report 16417367 (Version 3)
Quarter: 2020Q3

REPORT INFORMATION
  Report Type: Spontaneous
  Country: US (occurrence: US)
  Receive Date: 20190611
  Receipt Date: 20200806
  Transmission Date: 20201102
  Serious: No
  Sender: FDA-Public Use
  Company Number: US-GILEAD-2019-0412799

PATIENT
  Age: 25 Year
  Sex: Male

DRUGS (2)
  1. ODEFSEY [Concomitant]
     Active Substance: EMTRICITABINE\RILPIVIRINE HYDROCHLORIDE\TENOFOVIR ALAFENAMIDE FUMARATE
  2. COMPLERA [Suspect]
     Active Substance: EMTRICITABINE\RILPIVIRINE HYDROCHLORIDE\TENOFOVIR DISOPROXIL FUMARATE
     Indication: HIV INFECTION
     Dosage: UNK
     Route: 048
     Dates: start: 201311, end: 201705

REACTIONS (7)
  - Pain [Unknown]
  - Anxiety [Unknown]
  - Bone density decreased [Not Recovered/Not Resolved]
  - Emotional distress [Unknown]
  - Tooth loss [Not Recovered/Not Resolved]
  - Economic problem [Unknown]
  - Anhedonia [Unknown]

NARRATIVE: CASE EVENT DATE: 201601
